FAERS Safety Report 12573232 (Version 1)
Quarter: 2016Q3

REPORT INFORMATION
  Report Type: Spontaneous
  Country: US (occurrence: None)
  Receive Date: 20160719
  Receipt Date: 20160719
  Transmission Date: 20161109
  Serious: Yes (Life-Threatening, Disabling, Other)
  Sender: FDA-Public Use
  Company Number: None

PATIENT
  Age: 44 Year
  Sex: Female
  Weight: 53.52 kg

DRUGS (3)
  1. XARELTO [Concomitant]
     Active Substance: RIVAROXABAN
  2. TOPIRAMATE, 50 MG [Suspect]
     Active Substance: TOPIRAMATE
     Indication: MIGRAINE
     Route: 048
     Dates: start: 20141201
  3. AMETHYST-GENERIC [Suspect]
     Active Substance: ETHINYL ESTRADIOL\LEVONORGESTREL
     Indication: CONTRACEPTION
     Route: 048
     Dates: start: 20141201, end: 20160601

REACTIONS (6)
  - Pulmonary embolism [None]
  - Pulmonary haemorrhage [None]
  - Pulmonary infarction [None]
  - Budd-Chiari syndrome [None]
  - Hepatic vein thrombosis [None]
  - Atelectasis [None]

NARRATIVE: CASE EVENT DATE: 20160601
